FAERS Safety Report 4698195-8 (Version None)
Quarter: 2005Q2

REPORT INFORMATION
  Report Type: 
  Country: None (occurrence: None)
  Receive Date: 20050623
  Receipt Date: 20050526
  Transmission Date: 20051028
  Serious: Yes (Other)
  Sender: FDA-Public Use
  Company Number: JP-MERCK-0506USA00473

PATIENT
  Age: 55 Year
  Sex: Male

DRUGS (6)
  1. PEPCID RPD [Suspect]
     Indication: GASTRIC ULCER
     Route: 048
     Dates: start: 20050219, end: 20050414
  2. PANALDINE [Concomitant]
     Route: 048
     Dates: start: 20050219
  3. BLOPRESS [Concomitant]
     Indication: HYPERTENSION
     Route: 048
     Dates: start: 20050223, end: 20050414
  4. LIPITOR [Suspect]
     Indication: HYPERLIPIDAEMIA
     Route: 048
     Dates: start: 20050219, end: 20050414
  5. BASEN [Concomitant]
     Indication: DIABETES MELLITUS
     Route: 048
     Dates: start: 20050303, end: 20050414
  6. ASPIRIN [Concomitant]
     Route: 065

REACTIONS (1)
  - MUSCLE ENZYME INCREASED [None]
